FAERS Safety Report 9468030 (Version 2)
Quarter: 2013Q3

REPORT INFORMATION
  Report Type: Spontaneous
  Country: NZ (occurrence: NZ)
  Receive Date: 20130821
  Receipt Date: 20130825
  Transmission Date: 20140515
  Serious: Yes (Hospitalization, Other)
  Sender: FDA-Public Use
  Company Number: NZ-PFIZER INC-2013239390

PATIENT
  Age: 41 Year
  Sex: Male

DRUGS (13)
  1. CARBOPLATIN [Suspect]
     Indication: LUNG CANCER METASTATIC
     Dosage: CYCLE 1
     Dates: start: 20130305
  2. CARBOPLATIN [Suspect]
     Dosage: CYCLE 2
     Dates: start: 20130412
  3. CARBOPLATIN [Suspect]
     Dosage: CYCLE 3
     Dates: start: 20130508
  4. CARBOPLATIN [Suspect]
     Dosage: CYCLE 4
     Dates: start: 20130612
  5. CARBOPLATIN [Suspect]
     Dosage: CYCLE 5 DAY 1 (DAY 8 OMITTED)
     Dates: start: 20130711
  6. GEMCITABINE [Suspect]
     Indication: LUNG CANCER METASTATIC
     Dosage: CYCLE 1
     Dates: start: 20130305
  7. GEMCITABINE [Suspect]
     Dosage: CYCLE 2
     Dates: start: 20130412
  8. GEMCITABINE [Suspect]
     Dosage: CYCLE 3
     Dates: start: 20130508
  9. GEMCITABINE [Suspect]
     Dosage: CYCLE 4
     Dates: start: 20130612
  10. GEMCITABINE [Suspect]
     Dosage: CYCLE 5 DAY 1 (DAY 8 OMITTED)
     Dates: start: 20130711
  11. FLIXOTIDE [Concomitant]
  12. SALBUTAMOL [Concomitant]
  13. ENOXAPARIN [Concomitant]

REACTIONS (11)
  - Musculoskeletal pain [Recovering/Resolving]
  - Cellulitis [Recovered/Resolved]
  - Deep vein thrombosis [Recovered/Resolved]
  - Febrile neutropenia [Recovered/Resolved]
  - Hallucination [Recovered/Resolved]
  - Fatigue [Recovered/Resolved]
  - Haemoptysis [Recovered/Resolved]
  - Chest pain [Recovered/Resolved]
  - Disease progression [Unknown]
  - Lung cancer metastatic [Unknown]
  - Headache [Recovered/Resolved]
